FAERS Safety Report 9523377 (Version 3)
Quarter: 2014Q1

REPORT INFORMATION
  Report Type: Spontaneous
  Country: US (occurrence: US)
  Receive Date: 20130913
  Receipt Date: 20140218
  Transmission Date: 20141002
  Serious: Yes (Hospitalization)
  Sender: FDA-Public Use
  Company Number: US-B.I. PHARMACEUTICALS,INC./RIDGEFIELD-2013-BI-28002BP

PATIENT
  Age: 75 Year
  Sex: Male
  Weight: 72.12 kg

DRUGS (6)
  1. PRADAXA [Suspect]
     Indication: ATRIAL FIBRILLATION
     Dates: start: 201104, end: 20110527
  2. CARVEDILOL [Concomitant]
     Dates: start: 2010
  3. SOTALOL [Concomitant]
  4. DIGOXIN [Concomitant]
  5. LISINOPRIL [Concomitant]
     Dates: start: 2008
  6. SIMVASTATIN [Concomitant]
     Dates: start: 2008

REACTIONS (3)
  - Traumatic haemothorax [Unknown]
  - Chest injury [Unknown]
  - Rib fracture [Unknown]
